FAERS Safety Report 11122534 (Version 2)
Quarter: 2015Q3

REPORT INFORMATION
  Report Type: Spontaneous
  Country: US (occurrence: US)
  Receive Date: 20150519
  Receipt Date: 20150814
  Transmission Date: 20151125
  Serious: Yes (Hospitalization, Other)
  Sender: FDA-Public Use
  Company Number: US-GILEAD-2015-0153839

PATIENT
  Age: 58 Year
  Sex: Female
  Weight: 66 kg

DRUGS (3)
  1. IBUPROFEN. [Concomitant]
     Active Substance: IBUPROFEN
  2. HARVONI [Suspect]
     Active Substance: LEDIPASVIR\SOFOSBUVIR
     Indication: HEPATITIS C
     Dosage: UNK
     Route: 065
     Dates: start: 20150425, end: 20150717
  3. OXYMETAZOLINE [Concomitant]
     Active Substance: OXYMETAZOLINE
     Indication: EPISTAXIS

REACTIONS (5)
  - Hyperlipidaemia [Unknown]
  - Myocardial necrosis marker increased [Unknown]
  - Dyspnoea [Unknown]
  - Musculoskeletal chest pain [Unknown]
  - Headache [Unknown]

NARRATIVE: CASE EVENT DATE: 20150510
